FAERS Safety Report 6610503-7 (Version None)
Quarter: 2010Q1

REPORT INFORMATION
  Report Type: 
  Country: None (occurrence: None)
  Receive Date: 20100302
  Receipt Date: 20100224
  Transmission Date: 20100710
  Serious: Yes (Death, Hospitalization)
  Sender: FDA-Public Use
  Company Number: PHHO2010US01567

PATIENT
  Sex: Female
  Weight: 53.515 kg

DRUGS (3)
  1. AFINITOR [Suspect]
     Indication: BREAST CANCER METASTATIC
     Dosage: 10 MG, UNK
     Dates: start: 20090930, end: 20100101
  2. BEVACIZUMAB [Concomitant]
  3. PACLITAXEL [Concomitant]

REACTIONS (11)
  - CARDIOMEGALY [None]
  - COLECTOMY [None]
  - COLOSTOMY [None]
  - INTERSTITIAL LUNG DISEASE [None]
  - INTESTINAL OBSTRUCTION [None]
  - INTESTINAL PERFORATION [None]
  - MECHANICAL VENTILATION [None]
  - PERITONITIS [None]
  - PLEURAL EFFUSION [None]
  - RESPIRATORY FAILURE [None]
  - SEPSIS [None]
